FAERS Safety Report 12964447 (Version 1)
Quarter: 2016Q4

REPORT INFORMATION
  Report Type: Spontaneous
  Country: DE (occurrence: DE)
  Receive Date: 20161122
  Receipt Date: 20161122
  Transmission Date: 20170207
  Serious: Yes (Life-Threatening, Disabling)
  Sender: FDA-Public Use
  Company Number: GXKR2016DE005222

PATIENT

DRUGS (2)
  1. ITRACONAZOL 1A PHARMA [Suspect]
     Active Substance: ITRACONAZOLE
     Indication: ONYCHOMYCOSIS
     Dosage: UNK UKN, UNK
     Route: 065
     Dates: start: 201608
  2. SEMPERA [Suspect]
     Active Substance: ITRACONAZOLE
     Indication: ONYCHOMYCOSIS
     Dosage: UNK UKN, UNK
     Route: 065
     Dates: end: 201606

REACTIONS (3)
  - Cardiac failure [Not Recovered/Not Resolved]
  - Hepatitis [Not Recovered/Not Resolved]
  - Myocarditis [Not Recovered/Not Resolved]

NARRATIVE: CASE EVENT DATE: 20160713
